FAERS Safety Report 5408634-2 (Version None)
Quarter: 2007Q3

REPORT INFORMATION
  Report Type: 
  Country: None (occurrence: None)
  Receive Date: 20070808
  Receipt Date: 20070727
  Transmission Date: 20080115
  Serious: Yes (Other)
  Sender: FDA-Public Use
  Company Number: US-PFIZER INC-2007063461

PATIENT
  Sex: Male
  Weight: 74 kg

DRUGS (8)
  1. TIKOSYN [Suspect]
     Indication: ATRIAL FIBRILLATION
     Route: 048
  2. COLACE [Concomitant]
  3. TEMAZEPAM [Concomitant]
  4. TYLENOL (CAPLET) [Concomitant]
  5. VALSARTAN [Concomitant]
  6. ASCORBIC ACID [Concomitant]
  7. MULTIVITAMINS WITH MINERALS [Concomitant]
  8. ZINC [Concomitant]

REACTIONS (3)
  - ATRIAL FIBRILLATION [None]
  - LIVER FUNCTION TEST ABNORMAL [None]
  - LYMPHADENOPATHY MEDIASTINAL [None]
